FAERS Safety Report 16052584 (Version 1)
Quarter: 2019Q1

REPORT INFORMATION
  Report Type: Spontaneous
  Country: JP (occurrence: JP)
  Receive Date: 20190308
  Receipt Date: 20190308
  Transmission Date: 20190418
  Serious: Yes (Hospitalization)
  Sender: FDA-Public Use
  Company Number: JP-ROCHE-2279327

PATIENT
  Age: 78 Year
  Sex: Male

DRUGS (2)
  1. XOFLUZA [Suspect]
     Active Substance: BALOXAVIR MARBOXIL
     Indication: INFLUENZA
     Route: 048
     Dates: start: 20190226, end: 20190226
  2. PIRESPA [Concomitant]
     Active Substance: PIRFENIDONE
     Indication: INTERSTITIAL LUNG DISEASE

REACTIONS (1)
  - Rhabdomyolysis [Not Recovered/Not Resolved]

NARRATIVE: CASE EVENT DATE: 20190226
